FAERS Safety Report 9627037 (Version 2)
Quarter: 2013Q4

REPORT INFORMATION
  Report Type: Spontaneous
  Country: US (occurrence: None)
  Receive Date: 20131011
  Receipt Date: 20131023
  Transmission Date: 20140711
  Serious: Yes (Hospitalization)
  Sender: FDA-Public Use
  Company Number: 2013SGN00586

PATIENT
  Age: 66 Year
  Sex: Male
  Weight: 99.5 kg

DRUGS (1)
  1. BRENTUXIMAB VEDOTIN [Suspect]
     Indication: NON-HODGKIN^S LYMPHOMA
     Route: 042
     Dates: start: 20130916, end: 20130916

REACTIONS (5)
  - Hypercalcaemia [None]
  - Dyspnoea [None]
  - Lymphadenopathy [None]
  - Non-Hodgkin^s lymphoma [None]
  - Disease progression [None]
